FAERS Safety Report 7817062-1 (Version None)
Quarter: 2011Q4

REPORT INFORMATION
  Report Type: 
  Country: None (occurrence: None)
  Receive Date: 20111017
  Receipt Date: 20111006
  Transmission Date: 20120403
  Serious: Yes (Hospitalization)
  Sender: FDA-Public Use
  Company Number: PHFR2011GB04900

PATIENT
  Sex: Female

DRUGS (2)
  1. CLOZARIL [Suspect]
     Indication: PSYCHOTIC DISORDER
     Dates: start: 20110909
  2. CLOZARIL [Suspect]
     Indication: PARKINSON'S DISEASE
     Dosage: 300 MG
     Route: 048
     Dates: start: 20110701, end: 20110720

REACTIONS (9)
  - LEFT VENTRICULAR DYSFUNCTION [None]
  - SALIVARY HYPERSECRETION [None]
  - VOMITING [None]
  - CONSTIPATION [None]
  - PYREXIA [None]
  - ALANINE AMINOTRANSFERASE INCREASED [None]
  - LIVER FUNCTION TEST ABNORMAL [None]
  - EOSINOPHIL COUNT INCREASED [None]
  - HEART RATE INCREASED [None]
